FAERS Safety Report 4816444-X (Version None)
Quarter: 2005Q4

REPORT INFORMATION
  Report Type: 
  Country: None (occurrence: None)
  Receive Date: 20051028
  Receipt Date: 20051011
  Transmission Date: 20060501
  Serious: Yes (Death, Other)
  Sender: FDA-Public Use
  Company Number: CAN-2005-0000297

PATIENT
  Age: 49 Year
  Sex: Male

DRUGS (2)
  1. OXYCONTIN [Suspect]
     Dosage: 80 MG, SINGLE, ORAL
     Route: 048
     Dates: start: 20051004, end: 20051004
  2. ANTIDEPRESSANTS() [Suspect]
     Indication: DEPRESSION

REACTIONS (4)
  - DRUG INTERACTION [None]
  - INJURY ASPHYXIATION [None]
  - RESPIRATORY DEPRESSION [None]
  - SELF-MEDICATION [None]
